FAERS Safety Report 7458956-9 (Version None)
Quarter: 2011Q2

REPORT INFORMATION
  Report Type: 
  Country: None (occurrence: None)
  Receive Date: 20110504
  Receipt Date: 20110426
  Transmission Date: 20111010
  Serious: Yes (Death)
  Sender: FDA-Public Use
  Company Number: FR-GENENTECH-317862

PATIENT
  Sex: Male
  Weight: 73 kg

DRUGS (37)
  1. RITUXIMAB [Suspect]
     Dosage: UNK
     Route: 042
     Dates: start: 20100928
  2. DEXAMETHASONE [Concomitant]
     Indication: MANTLE CELL LYMPHOMA
     Dosage: UNK
     Route: 065
     Dates: start: 20100423
  3. CYCLOPHOSPHAMIDE [Concomitant]
     Dosage: UNK
     Dates: start: 20100906
  4. MELPHALAN [Concomitant]
     Indication: PRODUCT USED FOR UNKNOWN INDICATION
     Dosage: 280 MG, UNK
     Route: 042
     Dates: start: 20101121, end: 20101121
  5. VINCRISTINE [Concomitant]
     Indication: PRODUCT USED FOR UNKNOWN INDICATION
     Dosage: UNK
     Dates: start: 20100823
  6. RITUXIMAB [Suspect]
     Dosage: 990 MG, UNK
     Route: 042
     Dates: start: 20101115, end: 20101115
  7. DEXAMETHASONE [Concomitant]
     Dosage: UNK
     Route: 065
     Dates: start: 20100715
  8. ETOPOSIDE [Concomitant]
     Indication: PRODUCT USED FOR UNKNOWN INDICATION
     Dosage: 794 MG, UNK
     Route: 042
     Dates: start: 20101117, end: 20101120
  9. VINCRISTINE [Concomitant]
     Dosage: UNK
     Dates: start: 20101011
  10. PREDNISOLONE [Concomitant]
     Dosage: UNK
     Dates: start: 20100906
  11. PREDNISOLONE [Concomitant]
     Dosage: UNK
     Dates: start: 20100928
  12. RITUXIMAB [Suspect]
     Dosage: UNK
     Route: 042
     Dates: start: 20100823
  13. RITUXIMAB [Suspect]
     Dosage: UNK
     Route: 042
     Dates: start: 20100906
  14. CISPLATIN [Concomitant]
     Dosage: UNK
     Route: 042
     Dates: start: 20100616
  15. CISPLATIN [Concomitant]
     Dosage: UNK
     Route: 042
     Dates: start: 20100715
  16. VINCRISTINE [Concomitant]
     Dosage: UNK
     Dates: start: 20100906
  17. CISPLATIN [Concomitant]
     Indication: MANTLE CELL LYMPHOMA
     Dosage: UNK
     Route: 042
     Dates: start: 20100423
  18. DEXAMETHASONE [Concomitant]
     Dosage: UNK
     Route: 065
     Dates: start: 20100518
  19. CYCLOPHOSPHAMIDE [Concomitant]
     Indication: PRODUCT USED FOR UNKNOWN INDICATION
     Dosage: UNK
     Dates: start: 20100823
  20. PREDNISOLONE [Concomitant]
     Dosage: UNK
     Dates: start: 20101011
  21. RITUXIMAB [Suspect]
     Dosage: UNK
     Route: 042
     Dates: start: 20100616
  22. CISPLATIN [Concomitant]
     Dosage: UNK
     Route: 042
     Dates: start: 20100518
  23. CYCLOPHOSPHAMIDE [Concomitant]
     Dosage: UNK
     Dates: start: 20101011
  24. PREDNISOLONE [Concomitant]
     Indication: PRODUCT USED FOR UNKNOWN INDICATION
     Dosage: UNK
     Dates: start: 20100823
  25. RITUXIMAB [Suspect]
     Indication: MANTLE CELL LYMPHOMA
     Dosage: UNK
     Route: 042
     Dates: start: 20100423
  26. RITUXIMAB [Suspect]
     Dosage: UNK
     Route: 042
     Dates: start: 20101011
  27. CYTARABINE [Concomitant]
     Indication: MANTLE CELL LYMPHOMA
     Dosage: UNK
     Route: 042
     Dates: start: 20100423
  28. CYTARABINE [Concomitant]
     Dosage: UNK
     Route: 042
     Dates: start: 20100616
  29. CARMUSTINE [Concomitant]
     Indication: PRODUCT USED FOR UNKNOWN INDICATION
     Dosage: 590 MG, UNK
     Route: 042
     Dates: start: 20101116, end: 20101116
  30. RITUXIMAB [Suspect]
     Dosage: UNK
     Route: 042
     Dates: start: 20100715
  31. RITUXIMAB [Suspect]
     Dosage: UNK
     Route: 042
     Dates: start: 20100518
  32. CYTARABINE [Concomitant]
     Dosage: UNK
     Route: 042
     Dates: start: 20100518
  33. CYTARABINE [Concomitant]
     Dosage: UNK
     Route: 042
     Dates: start: 20100715
  34. CYTARABINE [Concomitant]
     Dosage: 793 MG, UNK
     Route: 042
     Dates: start: 20101117, end: 20101120
  35. DEXAMETHASONE [Concomitant]
     Dosage: UNK
     Route: 065
     Dates: start: 20100616
  36. CYCLOPHOSPHAMIDE [Concomitant]
     Dosage: UNK
     Dates: start: 20100928
  37. VINCRISTINE [Concomitant]
     Dosage: UNK
     Dates: start: 20100928

REACTIONS (1)
  - DEATH [None]
